FAERS Safety Report 9201845 (Version 1)
Quarter: 2013Q2

REPORT INFORMATION
  Report Type: Spontaneous
  Country: JP (occurrence: JP)
  Receive Date: 20130401
  Receipt Date: 20130401
  Transmission Date: 20140414
  Serious: Yes (Death)
  Sender: FDA-Public Use
  Company Number: JP-ELI_LILLY_AND_COMPANY-JP201303009029

PATIENT
  Sex: Male

DRUGS (1)
  1. GEMZAR [Suspect]
     Route: 042

REACTIONS (1)
  - Interstitial lung disease [Fatal]
